FAERS Safety Report 10903451 (Version 2)
Quarter: 2015Q1

REPORT INFORMATION
  Report Type: Spontaneous
  Country: CH (occurrence: None)
  Receive Date: 20150304
  Receipt Date: 20150304
  Transmission Date: 20150721
  Serious: Yes (Other)
  Sender: FDA-Public Use
  Company Number: 8014421

PATIENT
  Sex: Male

DRUGS (4)
  1. EUTHYROX [Suspect]
     Active Substance: LEVOTHYROXINE SODIUM
     Indication: PRODUCT USED FOR UNKNOWN INDICATION
     Dosage: PRODUCT TAKEN BY MOTHER
  2. ASPIRIN CARDIO [Suspect]
     Active Substance: ASPIRIN
     Indication: PRODUCT USED FOR UNKNOWN INDICATION
     Dosage: PRODUCT TAKEN BY MOTHER
  3. PLAQUENIL [Suspect]
     Active Substance: HYDROXYCHLOROQUINE SULFATE
     Indication: SYSTEMIC LUPUS ERYTHEMATOSUS
     Dosage: PRODUCT TAKEN BY MOTHER
  4. ASPIRIN CARDIO [Suspect]
     Active Substance: ASPIRIN
     Dosage: PRODUCT TAKEN BY MOTHER

REACTIONS (5)
  - Neonatal respiratory distress syndrome [None]
  - Hypoglycaemia neonatal [None]
  - Foetal growth restriction [None]
  - Maternal drugs affecting foetus [None]
  - Microcephaly [None]

NARRATIVE: CASE EVENT DATE: 2014
